FAERS Safety Report 5044359-3 (Version None)
Quarter: 2006Q2

REPORT INFORMATION
  Report Type: 
  Country: None (occurrence: None)
  Receive Date: 20060629
  Receipt Date: 20060615
  Transmission Date: 20061013
  Serious: Yes (Hospitalization)
  Sender: FDA-Public Use
  Company Number: 2006077703

PATIENT
  Age: 65 Year
  Sex: Female
  Weight: 61.4 kg

DRUGS (6)
  1. SOLU-MEDROL [Suspect]
     Indication: LYMPHOMA
     Dosage: 250 MG (250 MG, DAILY), INTRAVENOUS
     Route: 042
     Dates: start: 20051215
  2. CISPLATIN [Suspect]
     Indication: LYMPHOMA
     Dosage: 39 MG (39 MG, DAILY), INTRAVENOUS
     Route: 042
     Dates: start: 20051215
  3. CYTARABINE [Suspect]
     Indication: LYMPHOMA
     Dosage: 3100 MG (3100 MG, DAILY)
     Dates: start: 20051219
  4. VEPESID [Suspect]
     Indication: LYMPHOMA
     Dosage: 63 MG (63 MG, DAILY), INTRAVENOUS
     Route: 042
     Dates: start: 20051215
  5. LASIX [Concomitant]
  6. RITUXAN [Concomitant]

REACTIONS (5)
  - BONE MARROW FAILURE [None]
  - HAEMOGLOBIN DECREASED [None]
  - NEUTROPENIA [None]
  - PLATELET COUNT DECREASED [None]
  - WHITE BLOOD CELL COUNT DECREASED [None]
